FAERS Safety Report 25991826 (Version 1)
Quarter: 2025Q4

REPORT INFORMATION
  Report Type: Spontaneous
  Country: AU (occurrence: AU)
  Receive Date: 20251103
  Receipt Date: 20251103
  Transmission Date: 20260118
  Serious: Yes (Hospitalization)
  Sender: SK LIFE SCIENCE
  Company Number: AU-SK LIFE SCIENCE, INC-SKPVG-2025-002277

PATIENT

DRUGS (3)
  1. XCOPRI [Suspect]
     Active Substance: CENOBAMATE
     Indication: Product used for unknown indication
     Dosage: UNK
     Route: 065
  2. XCOPRI [Suspect]
     Active Substance: CENOBAMATE
     Dosage: 200 MILLIGRAM, QD
     Route: 048
     Dates: start: 20170828
  3. LAMOTRIGINE [Concomitant]
     Active Substance: LAMOTRIGINE
     Indication: Epilepsy
     Dosage: 150 MILLIGRAM, QD
     Route: 048
     Dates: start: 20150109

REACTIONS (1)
  - Rib fracture [Recovered/Resolved]

NARRATIVE: CASE EVENT DATE: 20250806
